FAERS Safety Report 6796039-1 (Version None)
Quarter: 2010Q2

REPORT INFORMATION
  Report Type: 
  Country: None (occurrence: None)
  Receive Date: 20100625
  Receipt Date: 20100618
  Transmission Date: 20101027
  Serious: Yes (Other)
  Sender: FDA-Public Use
  Company Number: CA-AMGEN-KDL417232

PATIENT
  Sex: Male
  Weight: 148 kg

DRUGS (5)
  1. ENBREL [Suspect]
     Indication: PSORIASIS
     Dates: start: 20081105, end: 20091209
  2. ENBREL [Suspect]
     Indication: PSORIATIC ARTHROPATHY
  3. COVERSYL [Concomitant]
     Dates: start: 20070401
  4. LIPITOR [Concomitant]
     Dates: start: 20060401
  5. ASPIRIN [Concomitant]
     Dates: start: 20070101

REACTIONS (2)
  - PSORIASIS [None]
  - THERAPEUTIC RESPONSE DECREASED [None]
